FAERS Safety Report 15719675 (Version 3)
Quarter: 2019Q1

REPORT INFORMATION
  Report Type: Spontaneous
  Country: IT (occurrence: IT)
  Receive Date: 20181213
  Receipt Date: 20190108
  Transmission Date: 20190417
  Serious: Yes (Hospitalization)
  Sender: FDA-Public Use
  Company Number: IT-PFIZER INC-2018507380

PATIENT
  Age: 74 Year
  Sex: Female

DRUGS (10)
  1. BLOPRESID [Concomitant]
     Active Substance: CANDESARTAN CILEXETIL\HYDROCHLOROTHIAZIDE
     Dosage: UNK
  2. LYRICA [Suspect]
     Active Substance: PREGABALIN
     Indication: DRUG ABUSE
     Dosage: UNK
     Route: 048
     Dates: start: 20181014, end: 20181014
  3. CRESTOR [Concomitant]
     Active Substance: ROSUVASTATIN CALCIUM
     Dosage: UNK
  4. VENLAFAXINE HCL [Suspect]
     Active Substance: VENLAFAXINE HYDROCHLORIDE
     Indication: DRUG ABUSE
     Dosage: UNK
     Route: 048
     Dates: start: 20181014, end: 20181014
  5. TICLOPIDINE [Concomitant]
     Active Substance: TICLOPIDINE
     Dosage: UNK
  6. NOVOMIX [Concomitant]
     Active Substance: INSULIN ASPART
     Dosage: UNK
  7. LEVEMIR [Suspect]
     Active Substance: INSULIN DETEMIR
     Indication: DRUG ABUSE
     Dosage: UNK
     Dates: start: 20181014, end: 20181014
  8. ESOMEPRAZOLE. [Concomitant]
     Active Substance: ESOMEPRAZOLE MAGNESIUM
     Dosage: UNK
  9. NOVORAPID [Concomitant]
     Active Substance: INSULIN ASPART
     Dosage: UNK
  10. MINIAS [Concomitant]
     Active Substance: LORMETAZEPAM
     Dosage: 30 GTT, UNK

REACTIONS (5)
  - Intentional product misuse [Unknown]
  - Sopor [Unknown]
  - Drug abuse [Unknown]
  - Intentional self-injury [Unknown]
  - Toxicity to various agents [Unknown]

NARRATIVE: CASE EVENT DATE: 20181014
